FAERS Safety Report 15330306 (Version 1)
Quarter: 2018Q3

REPORT INFORMATION
  Report Type: Spontaneous
  Country: US (occurrence: US)
  Receive Date: 20180829
  Receipt Date: 20180829
  Transmission Date: 20181010
  Serious: Yes (Life-Threatening, Hospitalization)
  Sender: FDA-Public Use
  Company Number: US-SAKK-2018SA236943AA

PATIENT
  Age: 74 Year
  Sex: Male
  Weight: 103.6 kg

DRUGS (13)
  1. METFORMIN [Concomitant]
     Active Substance: METFORMIN HYDROCHLORIDE
     Dosage: UNK
     Route: 065
     Dates: start: 2003, end: 20180806
  2. NOVOLOG [Concomitant]
     Active Substance: INSULIN ASPART
     Dosage: UNK
     Route: 065
     Dates: start: 2010
  3. ATORVASTATIN [Concomitant]
     Active Substance: ATORVASTATIN
     Dosage: UNK
     Route: 065
     Dates: start: 2008
  4. LYRICA [Concomitant]
     Active Substance: PREGABALIN
     Dosage: UNK
     Route: 065
     Dates: start: 20180426
  5. AMLODIPINE [Concomitant]
     Active Substance: AMLODIPINE BESYLATE
     Dosage: UNKNOWN
     Route: 065
     Dates: start: 2008
  6. LISINOPRIL. [Concomitant]
     Active Substance: LISINOPRIL
     Dosage: UNKNOWN
     Route: 065
     Dates: start: 2008
  7. CENTRUM JR [ASCORBIC ACID;BIOTIN;CALCIUM;CALCIUM CARBONATE;CALCIUM PAN [Concomitant]
     Dosage: UNK
     Route: 065
     Dates: start: 2003
  8. LANTUS [Suspect]
     Active Substance: INSULIN GLARGINE
     Indication: TYPE 2 DIABETES MELLITUS
     Dosage: 100 IU, QD
     Route: 058
     Dates: start: 20180329
  9. FISH OIL [Concomitant]
     Active Substance: FISH OIL
     Dosage: UNK
     Route: 065
     Dates: start: 2010
  10. OMEPRAZOLE. [Concomitant]
     Active Substance: OMEPRAZOLE
     Dosage: UNKNOWN
     Route: 065
     Dates: start: 2012
  11. DILTIAZEM. [Concomitant]
     Active Substance: DILTIAZEM
     Dosage: UNKNOWN
     Route: 065
     Dates: start: 2012
  12. FUROSIMIDE [Concomitant]
     Active Substance: FUROSEMIDE
     Dosage: UNKNOWN
     Route: 065
     Dates: start: 2004
  13. DABIGATRAN [Concomitant]
     Active Substance: DABIGATRAN
     Dosage: UNKNOWN
     Route: 065
     Dates: start: 2016

REACTIONS (1)
  - Lactic acidosis [Recovered/Resolved]

NARRATIVE: CASE EVENT DATE: 20180806
